FAERS Safety Report 6064399-5 (Version None)
Quarter: 2009Q1

REPORT INFORMATION
  Report Type: 
  Country: None (occurrence: None)
  Receive Date: 20090204
  Receipt Date: 20090126
  Transmission Date: 20090719
  Serious: Yes (Hospitalization, Other)
  Sender: FDA-Public Use
  Company Number: US-BAYER-200910274BCC

PATIENT
  Age: 43 Year
  Sex: Female
  Weight: 159 kg

DRUGS (2)
  1. ALKA SELTZER PLUS LIQUID GELS DAY [Suspect]
     Indication: DRUG USE FOR UNKNOWN INDICATION
     Dates: start: 20090125
  2. ALKA SELTZER PLUS LIQUID GEL NIGHT [Suspect]
     Indication: DRUG USE FOR UNKNOWN INDICATION
     Dosage: TOTAL DAILY DOSE: 1 DF  UNIT DOSE: 1 DF
     Dates: start: 20090125

REACTIONS (5)
  - ECCHYMOSIS [None]
  - GINGIVAL BLEEDING [None]
  - PETECHIAE [None]
  - PLATELET COUNT ABNORMAL [None]
  - THROMBOCYTOPENIA [None]
